FAERS Safety Report 7998515-2 (Version None)
Quarter: 2011Q4

REPORT INFORMATION
  Report Type: 
  Country: None (occurrence: None)
  Receive Date: 20111221
  Receipt Date: 20111215
  Transmission Date: 20120403
  Serious: Yes (Other)
  Sender: FDA-Public Use
  Company Number: US-JNJFOC-20111207034

PATIENT
  Sex: Female
  Weight: 61.69 kg

DRUGS (3)
  1. SYNTHROID [Concomitant]
     Indication: THYROID DISORDER
     Route: 048
  2. SIMPONI [Suspect]
     Indication: ANKYLOSING SPONDYLITIS
     Route: 058
     Dates: start: 20090101
  3. CALCIUM AND VITAMIN D [Concomitant]
     Indication: MEDICAL DIET
     Dosage: 600/800MG TWICE A DAY
     Route: 048

REACTIONS (10)
  - VITAMIN D DEFICIENCY [None]
  - INJECTION SITE PRURITUS [None]
  - DEVICE FAILURE [None]
  - DYSURIA [None]
  - RED BLOOD CELL COUNT INCREASED [None]
  - INJECTION SITE ERYTHEMA [None]
  - BLOOD CHOLESTEROL INCREASED [None]
  - LIVER FUNCTION TEST ABNORMAL [None]
  - DRUG DOSE OMISSION [None]
  - INJECTION SITE HAEMORRHAGE [None]
